FAERS Safety Report 9599597 (Version 1)
Quarter: 2013Q4

REPORT INFORMATION
  Report Type: Spontaneous
  Country: US (occurrence: US)
  Receive Date: 20131004
  Receipt Date: 20131004
  Transmission Date: 20140711
  Serious: No
  Sender: FDA-Public Use
  Company Number: US-AMGEN-USASP2013030382

PATIENT
  Age: 44 Year
  Sex: Female
  Weight: 68.03 kg

DRUGS (5)
  1. ENBREL [Suspect]
     Indication: PRODUCT USED FOR UNKNOWN INDICATION
     Dosage: 50 MG, QWK
     Route: 058
     Dates: end: 201302
  2. DIOVAN [Concomitant]
     Dosage: 320 MG, UNK
  3. AMBIEN [Concomitant]
     Dosage: 10 MG, UNK
  4. CYMBALTA [Concomitant]
     Dosage: 60 MG, UNK
  5. MULTIVITAMINS, PLAIN [Concomitant]
     Dosage: UNK

REACTIONS (2)
  - Drug ineffective [Unknown]
  - Psoriasis [Unknown]
